FAERS Safety Report 19492853 (Version 1)
Quarter: 2021Q3

REPORT INFORMATION
  Report Type: Spontaneous
  Country: US (occurrence: US)
  Receive Date: 20210705
  Receipt Date: 20210705
  Transmission Date: 20211014
  Serious: Yes (Death)
  Sender: FDA-Public Use
  Company Number: US-ASTRAZENECA-2021A582537

PATIENT
  Sex: Male
  Weight: 72.6 kg

DRUGS (1)
  1. CALQUENCE [Suspect]
     Active Substance: ACALABRUTINIB
     Indication: NEOPLASM MALIGNANT
     Route: 048

REACTIONS (2)
  - Pneumonia [Fatal]
  - Blood sodium decreased [Unknown]
